FAERS Safety Report 9826839 (Version 2)
Quarter: 2015Q1

REPORT INFORMATION
  Report Type: Spontaneous
  Country: US (occurrence: US)
  Receive Date: 20140117
  Receipt Date: 20150112
  Transmission Date: 20150721
  Serious: No
  Sender: FDA-Public Use
  Company Number: US-GLAXOSMITHKLINE-A1003392A

PATIENT

DRUGS (1)
  1. PROMACTA [Suspect]
     Active Substance: ELTROMBOPAG OLAMINE
     Indication: PRODUCT USED FOR UNKNOWN INDICATION
     Dosage: 25 MG AND 50 MG
     Route: 048
     Dates: start: 20121030, end: 20121120

REACTIONS (4)
  - No therapeutic response [Unknown]
  - Fall [Unknown]
  - Lower limb fracture [Unknown]
  - Adverse drug reaction [Unknown]
